FAERS Safety Report 5358126-4 (Version None)
Quarter: 2007Q2

REPORT INFORMATION
  Report Type: 
  Country: None (occurrence: None)
  Receive Date: 20070530
  Receipt Date: 20070102
  Transmission Date: 20071010
  Serious: Yes (Other)
  Sender: FDA-Public Use
  Company Number: US200606000250

PATIENT
  Age: 45 Year
  Sex: Male
  Weight: 87.5 kg

DRUGS (5)
  1. ZYPREXA [Suspect]
     Dosage: 30 MG
     Dates: start: 19930101
  2. RISPERIDONE [Concomitant]
  3. DIVALPROEX SODIUM [Concomitant]
  4. FLUOXETINE [Concomitant]
  5. PAROXETINE [Concomitant]

REACTIONS (5)
  - HYPERGLYCAEMIA [None]
  - HYPERGLYCAEMIC HYPEROSMOLAR NONKETOTIC SYNDROME [None]
  - PRESCRIBED OVERDOSE [None]
  - VISION BLURRED [None]
  - WEIGHT DECREASED [None]
